FAERS Safety Report 19482268 (Version 10)
Quarter: 2024Q4

REPORT INFORMATION
  Report Type: Spontaneous
  Country: US (occurrence: US)
  Receive Date: 20210701
  Receipt Date: 20241121
  Transmission Date: 20250115
  Serious: Yes (Death, Other)
  Sender: PFIZER
  Company Number: US-PFIZER INC-2021382668

PATIENT
  Age: 80 Year
  Sex: Female
  Weight: 48.073 kg

DRUGS (1)
  1. XELJANZ [Suspect]
     Active Substance: TOFACITINIB CITRATE
     Indication: Rheumatoid arthritis
     Dosage: 5MG TWICE A DAY
     Dates: start: 200810, end: 20240610

REACTIONS (3)
  - Neoplasm malignant [Fatal]
  - Neoplasm recurrence [Not Recovered/Not Resolved]
  - Confusional state [Unknown]

NARRATIVE: CASE EVENT DATE: 20220101
